FAERS Safety Report 5527206-2 (Version None)
Quarter: 2007Q4

REPORT INFORMATION
  Report Type: 
  Country: None (occurrence: None)
  Receive Date: 20071121
  Receipt Date: 20071112
  Transmission Date: 20080405
  Serious: Yes (Hospitalization)
  Sender: FDA-Public Use
  Company Number: 2007002196

PATIENT
  Age: 89 Year
  Sex: Male

DRUGS (3)
  1. TARCEVA [Suspect]
     Indication: NON-SMALL CELL LUNG CANCER RECURRENT
     Dosage: 150 MG, ORAL
     Route: 048
     Dates: end: 20071109
  2. HEPARIN [Concomitant]
  3. ANTIBIOTIC [Concomitant]

REACTIONS (2)
  - NO THERAPEUTIC RESPONSE [None]
  - RESPIRATORY FAILURE [None]
